FAERS Safety Report 7464347-7 (Version None)
Quarter: 2011Q2

REPORT INFORMATION
  Report Type: 
  Country: None (occurrence: None)
  Receive Date: 20110509
  Receipt Date: 20110415
  Transmission Date: 20111010
  Serious: Yes (Hospitalization)
  Sender: FDA-Public Use
  Company Number: US-BAYER-2011-033473

PATIENT
  Age: 69 Year
  Sex: Female

DRUGS (1)
  1. NEXAVAR [Suspect]
     Indication: PANCREATIC CARCINOMA
     Dosage: 200 MG, QID
     Route: 048
     Dates: start: 20110329, end: 20110414

REACTIONS (3)
  - BACK PAIN [None]
  - ABDOMINAL PAIN UPPER [None]
  - RASH GENERALISED [None]
